FAERS Safety Report 13353121 (Version 2)
Quarter: 2017Q3

REPORT INFORMATION
  Report Type: Spontaneous
  Country: PT (occurrence: PT)
  Receive Date: 20170321
  Receipt Date: 20170907
  Transmission Date: 20171127
  Serious: Yes (Disabling)
  Sender: FDA-Public Use
  Company Number: PT-AMGEN-PRTSP2017042337

PATIENT
  Age: 68 Year
  Sex: Male

DRUGS (1)
  1. PROCORALAN [Suspect]
     Active Substance: IVABRADINE
     Indication: PRODUCT USED FOR UNKNOWN INDICATION
     Dosage: 7.5 MG, BID
     Route: 048
     Dates: start: 2013

REACTIONS (5)
  - Constipation [Recovered/Resolved]
  - Pruritus [Recovered/Resolved]
  - Dry skin [Recovered/Resolved]
  - Erythema [Recovered/Resolved]
  - Swelling face [Recovered/Resolved]

NARRATIVE: CASE EVENT DATE: 20170301
